FAERS Safety Report 15821472 (Version 1)
Quarter: 2019Q1

REPORT INFORMATION
  Report Type: Spontaneous
  Country: US (occurrence: US)
  Receive Date: 20190114
  Receipt Date: 20190114
  Transmission Date: 20190417
  Serious: No
  Sender: FDA-Public Use
  Company Number: US-ALLERGAN-1823913US

PATIENT
  Sex: Male

DRUGS (1)
  1. URSO 250 [Suspect]
     Active Substance: URSODIOL
     Indication: AUTOIMMUNE HEPATITIS
     Dosage: 300 MG, UNK
     Route: 065

REACTIONS (7)
  - Off label use [Unknown]
  - Diarrhoea [Unknown]
  - Alopecia [Unknown]
  - Dyspnoea [Unknown]
  - Back pain [Unknown]
  - Fatigue [Unknown]
  - Constipation [Unknown]
